FAERS Safety Report 26204531 (Version 1)
Quarter: 2025Q4

REPORT INFORMATION
  Report Type: Spontaneous
  Country: EU (occurrence: EU)
  Receive Date: 20251227
  Receipt Date: 20251227
  Transmission Date: 20260118
  Serious: Yes (Hospitalization, Other)
  Sender: AUROBINDO
  Company Number: EU-ADRED-06413-01

PATIENT
  Age: 72 Year
  Sex: Female
  Weight: 54.4 kg

DRUGS (1)
  1. IBUPROFEN [Suspect]
     Active Substance: IBUPROFEN
     Indication: Product used for unknown indication
     Dosage: 600 MILLIGRAM (UP TO 6 PIECES, TABLETS)
     Route: 061

REACTIONS (5)
  - Acute kidney injury [Unknown]
  - Back pain [Unknown]
  - Breast pain [Unknown]
  - Paraesthesia [Unknown]
  - Product prescribing error [Unknown]
